FAERS Safety Report 15828091 (Version 1)
Quarter: 2019Q1

REPORT INFORMATION
  Report Type: Spontaneous
  Country: CA (occurrence: CA)
  Receive Date: 20190115
  Receipt Date: 20190115
  Transmission Date: 20190417
  Serious: Yes (Other)
  Sender: FDA-Public Use
  Company Number: CA-PFIZER INC-2721429

PATIENT
  Age: 34 Year
  Sex: Female
  Weight: 77 kg

DRUGS (3)
  1. LIDOCAINE HCL [Suspect]
     Active Substance: LIDOCAINE HYDROCHLORIDE
     Indication: EPIDURAL ANAESTHESIA
     Dosage: 3 ML, UNK
     Route: 037
  2. FENTANYL CITRATE. [Suspect]
     Active Substance: FENTANYL CITRATE
     Indication: EPIDURAL ANAESTHESIA
     Dosage: UNK
     Route: 037
  3. BUPIVACAINE HCL [Suspect]
     Active Substance: BUPIVACAINE HYDROCHLORIDE
     Indication: EPIDURAL ANAESTHESIA
     Dosage: 5 ML, UNK
     Route: 037

REACTIONS (2)
  - Anaesthetic complication [Recovered/Resolved]
  - Incorrect route of product administration [Recovered/Resolved]
